FAERS Safety Report 25199503 (Version 3)
Quarter: 2025Q3

REPORT INFORMATION
  Report Type: Report from Study
  Country: US (occurrence: US)
  Receive Date: 20250415
  Receipt Date: 20250903
  Transmission Date: 20251021
  Serious: Yes (Hospitalization, Other)
  Sender: TAKEDA
  Company Number: US-SHIRE-US202026357

PATIENT
  Age: 65 Year
  Sex: Female
  Weight: 77 kg

DRUGS (40)
  1. HUMAN IMMUNOGLOBULIN G [Suspect]
     Active Substance: HUMAN IMMUNOGLOBULIN G
     Indication: Immune system disorder
     Dosage: 18 GRAM, Q2WEEKS
  2. HUMAN IMMUNOGLOBULIN G [Suspect]
     Active Substance: HUMAN IMMUNOGLOBULIN G
     Indication: Hypergammaglobulinaemia
     Dosage: 20 GRAM, Q2WEEKS
  3. HUMAN IMMUNOGLOBULIN G [Suspect]
     Active Substance: HUMAN IMMUNOGLOBULIN G
     Dosage: 22 GRAM, Q2WEEKS
  4. HUMAN IMMUNOGLOBULIN G [Suspect]
     Active Substance: HUMAN IMMUNOGLOBULIN G
     Dosage: 24 GRAM, Q2WEEKS
  5. BENADRYL [Suspect]
     Active Substance: DIPHENHYDRAMINE HYDROCHLORIDE
     Indication: Product used for unknown indication
  6. INFLUENZA VIRUS VACCINE [Suspect]
     Active Substance: INFLUENZA VIRUS VACCINE
     Indication: Product used for unknown indication
  7. ASPIRIN [Concomitant]
     Active Substance: ASPIRIN
  8. VITAMIN D3 [Concomitant]
     Active Substance: CHOLECALCIFEROL
  9. OMEPRAZOLE [Concomitant]
     Active Substance: OMEPRAZOLE
  10. CRESTOR [Concomitant]
     Active Substance: ROSUVASTATIN CALCIUM
  11. LEVOTHYROXINE SODIUM [Concomitant]
     Active Substance: LEVOTHYROXINE SODIUM
  12. ISOSORBIDE DINITRATE [Concomitant]
     Active Substance: ISOSORBIDE DINITRATE
  13. AMLODIPINE BESYLATE [Concomitant]
     Active Substance: AMLODIPINE BESYLATE
  14. ZINC GLUCONATE [Concomitant]
     Active Substance: ZINC GLUCONATE
  15. SINGULAIR [Concomitant]
     Active Substance: MONTELUKAST SODIUM
  16. AZELASTINE HYDROCHLORIDE [Concomitant]
     Active Substance: AZELASTINE HYDROCHLORIDE
  17. LOSARTAN POTASSIUM [Concomitant]
     Active Substance: LOSARTAN POTASSIUM
  18. FAMOTIDINE [Concomitant]
     Active Substance: FAMOTIDINE
  19. ROSUVASTATIN CALCIUM [Concomitant]
     Active Substance: ROSUVASTATIN CALCIUM
  20. MIRALAX [Concomitant]
     Active Substance: POLYETHYLENE GLYCOL 3350
  21. DIPHENHYDRAMINE [Concomitant]
     Active Substance: DIPHENHYDRAMINE
  22. SIMVASTATIN [Concomitant]
     Active Substance: SIMVASTATIN
  23. POTASSIUM [Concomitant]
     Active Substance: POTASSIUM
  24. CALCIUM [Concomitant]
     Active Substance: CALCIUM
  25. EPINEPHRINE [Concomitant]
     Active Substance: EPINEPHRINE
  26. RHINOCORT ALLERGY [Concomitant]
     Active Substance: BUDESONIDE
  27. ACETAMINOPHEN [Concomitant]
     Active Substance: ACETAMINOPHEN
  28. SYNTHROID [Concomitant]
     Active Substance: LEVOTHYROXINE SODIUM
  29. LORAZEPAM [Concomitant]
     Active Substance: LORAZEPAM
  30. AUGMENTIN [Concomitant]
     Active Substance: AMOXICILLIN\CLAVULANATE POTASSIUM
  31. VITAMIN B12 [Concomitant]
     Active Substance: CYANOCOBALAMIN
  32. Lmx [Concomitant]
  33. DOXYCYCLINE HYCLATE [Concomitant]
     Active Substance: DOXYCYCLINE HYCLATE
  34. METHYLPREDNISOLONE [Concomitant]
     Active Substance: METHYLPREDNISOLONE
  35. DIPHENHYDRAMINE HYDROCHLORIDE [Concomitant]
     Active Substance: DIPHENHYDRAMINE HYDROCHLORIDE
  36. CETIRIZINE HYDROCHLORIDE [Concomitant]
     Active Substance: CETIRIZINE HYDROCHLORIDE
  37. MONTELUKAST SODIUM [Concomitant]
     Active Substance: MONTELUKAST SODIUM
  38. HYDROCHLOROTHIAZIDE [Concomitant]
     Active Substance: HYDROCHLOROTHIAZIDE
  39. DULOXETINE HYDROCHLORIDE [Concomitant]
     Active Substance: DULOXETINE HYDROCHLORIDE
  40. AZELASTINE [Concomitant]
     Active Substance: AZELASTINE

REACTIONS (59)
  - Pneumonia [Unknown]
  - Pneumothorax [Unknown]
  - Dehydration [Unknown]
  - Sinus disorder [Unknown]
  - Lower respiratory tract infection [Unknown]
  - Coeliac disease [Unknown]
  - Gastric ulcer [Unknown]
  - Deafness [Unknown]
  - Influenza [Unknown]
  - Nasopharyngitis [Unknown]
  - Musculoskeletal discomfort [Unknown]
  - Back disorder [Unknown]
  - Bronchitis [Recovered/Resolved]
  - Eye disorder [Unknown]
  - Myocardial calcification [Unknown]
  - Rash macular [Unknown]
  - Thyroid disorder [Unknown]
  - Complication associated with device [Unknown]
  - COVID-19 [Unknown]
  - Urinary tract infection [Unknown]
  - Pharyngitis streptococcal [Unknown]
  - Candida infection [Unknown]
  - Body height decreased [Unknown]
  - Memory impairment [Unknown]
  - Infection [Unknown]
  - Weight decreased [Unknown]
  - Rash pruritic [Unknown]
  - Respiratory tract infection [Unknown]
  - Hypoacusis [Unknown]
  - Cardiac murmur [Unknown]
  - Fibromyalgia [Unknown]
  - Lung disorder [Unknown]
  - Depression [Unknown]
  - Obstruction [Unknown]
  - Device use issue [Unknown]
  - Infusion site discharge [Unknown]
  - Frequent bowel movements [Unknown]
  - Inappropriate schedule of product administration [Unknown]
  - Illness [Unknown]
  - Increased tendency to bruise [Unknown]
  - Arterial occlusive disease [Unknown]
  - Upper respiratory tract infection [Unknown]
  - Sinusitis [Recovering/Resolving]
  - Infusion site haemorrhage [Unknown]
  - Infusion site nodule [Unknown]
  - Conjunctivitis [Unknown]
  - Muscle spasms [Unknown]
  - Rash erythematous [Unknown]
  - Malaise [Unknown]
  - Hyperhidrosis [Unknown]
  - Abdominal pain upper [Unknown]
  - Injection site pain [Unknown]
  - Pain [Unknown]
  - Infusion site pain [Unknown]
  - Back pain [Unknown]
  - Abdominal pain [Unknown]
  - Pruritus [Unknown]
  - Fatigue [Unknown]
  - Brain fog [Unknown]

NARRATIVE: CASE EVENT DATE: 20201103
